FAERS Safety Report 5752839-8 (Version None)
Quarter: 2008Q2

REPORT INFORMATION
  Report Type: 
  Country: None (occurrence: None)
  Receive Date: 20080529
  Receipt Date: 20080517
  Transmission Date: 20081010
  Serious: Yes (Other)
  Sender: FDA-Public Use
  Company Number: US-PFIZER INC-2008043956

PATIENT
  Sex: Male
  Weight: 111.8 kg

DRUGS (7)
  1. CHANTIX [Suspect]
     Indication: SMOKING CESSATION THERAPY
     Dates: start: 20080512, end: 20080512
  2. DILAUDID [Concomitant]
  3. LIPITOR [Concomitant]
  4. METOPROLOL TARTRATE [Concomitant]
  5. ONE-A-DAY [Concomitant]
  6. ACETYLSALICYLIC ACID SRT [Concomitant]
  7. TRAZODONE HCL [Concomitant]

REACTIONS (6)
  - CONFUSIONAL STATE [None]
  - FEELING ABNORMAL [None]
  - MALAISE [None]
  - NAUSEA [None]
  - THERAPEUTIC PROCEDURE [None]
  - VISUAL FIELD DEFECT [None]
